FAERS Safety Report 4901943-2 (Version None)
Quarter: 2006Q1

REPORT INFORMATION
  Report Type: 
  Country: None (occurrence: None)
  Receive Date: 20060206
  Receipt Date: 20060126
  Transmission Date: 20060701
  Serious: Yes (Life-Threatening)
  Sender: FDA-Public Use
  Company Number: 2006AP00472

PATIENT
  Age: 25762 Day
  Sex: Male
  Weight: 56.9 kg

DRUGS (13)
  1. IRESSA [Suspect]
     Indication: NON-SMALL CELL LUNG CANCER
     Route: 048
     Dates: start: 20060118, end: 20060123
  2. RADIOTHERAPY [Concomitant]
     Dosage: 30 GY
     Dates: start: 20050420, end: 20050509
  3. CARBOPLATIN [Concomitant]
     Dosage: 2 COURSES
     Dates: start: 20050427, end: 20050518
  4. PACLITAXEL [Concomitant]
     Dates: start: 20050427, end: 20050518
  5. GASTER [Concomitant]
     Indication: PROPHYLAXIS AGAINST GASTROINTESTINAL ULCER
     Route: 048
     Dates: start: 20050408, end: 20060127
  6. HARNAL D [Concomitant]
     Indication: BENIGN PROSTATIC HYPERPLASIA
     Route: 048
     Dates: start: 20050408, end: 20060127
  7. BUP-4 [Concomitant]
     Indication: BENIGN PROSTATIC HYPERPLASIA
     Route: 048
     Dates: start: 20050408, end: 20060127
  8. LOXONIN [Concomitant]
     Indication: CANCER PAIN
     Route: 048
     Dates: start: 20050408, end: 20060127
  9. CYTOTEC [Concomitant]
     Indication: GASTRITIS
     Route: 048
     Dates: start: 20050408, end: 20060127
  10. LENDORMIN [Concomitant]
     Indication: INSOMNIA
     Route: 048
     Dates: start: 20050408, end: 20060127
  11. DUROTEP [Concomitant]
     Indication: CANCER PAIN
     Dates: start: 20050605, end: 20060127
  12. MEXITIL [Concomitant]
     Indication: NEUROPATHY PERIPHERAL
     Route: 048
     Dates: start: 20051205, end: 20060127
  13. NOVAMIN [Concomitant]
     Indication: NAUSEA
     Route: 048
     Dates: start: 20060119, end: 20060127

REACTIONS (3)
  - BLOOD LACTATE DEHYDROGENASE INCREASED [None]
  - DEPRESSED LEVEL OF CONSCIOUSNESS [None]
  - INTERSTITIAL LUNG DISEASE [None]
